FAERS Safety Report 14616449 (Version 3)
Quarter: 2019Q3

REPORT INFORMATION
  Report Type: Spontaneous
  Country: US (occurrence: US)
  Receive Date: 20180309
  Receipt Date: 20190730
  Transmission Date: 20191004
  Serious: Yes (Other)
  Sender: FDA-Public Use
  Company Number: US-ASTRAZENECA-2018SE27622

PATIENT
  Age: 24423 Day
  Sex: Female
  Weight: 81.6 kg

DRUGS (31)
  1. FLUTICASONE. [Concomitant]
     Active Substance: FLUTICASONE
  2. FUROSEMIDE. [Concomitant]
     Active Substance: FUROSEMIDE
  3. PREMARIN [Concomitant]
     Active Substance: ESTROGENS, CONJUGATED
  4. CALCITRIOL. [Concomitant]
     Active Substance: CALCITRIOL
  5. AMOXICILLIN. [Concomitant]
     Active Substance: AMOXICILLIN
  6. CRESTOR [Concomitant]
     Active Substance: ROSUVASTATIN CALCIUM
  7. TORSEMIDE. [Concomitant]
     Active Substance: TORSEMIDE
  8. COUMADIN [Concomitant]
     Active Substance: WARFARIN SODIUM
  9. PROTONIX [Suspect]
     Active Substance: PANTOPRAZOLE SODIUM
     Indication: GASTROOESOPHAGEAL REFLUX DISEASE
     Route: 065
     Dates: start: 20150925, end: 20150926
  10. LISINOPRIL. [Concomitant]
     Active Substance: LISINOPRIL
  11. CALCITROL [Concomitant]
  12. HYDROCODONE [Concomitant]
     Active Substance: HYDROCODONE
  13. FISH OIL [Concomitant]
     Active Substance: FISH OIL
  14. HYDRALAZINE [Concomitant]
     Active Substance: HYDRALAZINE HYDROCHLORIDE
  15. PROTONIX [Suspect]
     Active Substance: PANTOPRAZOLE SODIUM
     Indication: GASTROOESOPHAGEAL REFLUX DISEASE
     Route: 065
     Dates: start: 20130528, end: 20130601
  16. SPIRONOLACTONE. [Concomitant]
     Active Substance: SPIRONOLACTONE
  17. PRAVACHOL [Concomitant]
     Active Substance: PRAVASTATIN SODIUM
  18. FOSAMAX [Concomitant]
     Active Substance: ALENDRONATE SODIUM
  19. NEXIUM [Suspect]
     Active Substance: ESOMEPRAZOLE MAGNESIUM
     Indication: GASTROOESOPHAGEAL REFLUX DISEASE
     Route: 048
     Dates: start: 201003, end: 201604
  20. LOSARTAN. [Concomitant]
     Active Substance: LOSARTAN
  21. LORTAB [Concomitant]
     Active Substance: ACETAMINOPHEN\HYDROCODONE BITARTRATE
  22. NEXIUM [Suspect]
     Active Substance: ESOMEPRAZOLE MAGNESIUM
     Indication: GASTROOESOPHAGEAL REFLUX DISEASE
     Route: 048
     Dates: start: 20110331
  23. TRAMADOL. [Concomitant]
     Active Substance: TRAMADOL
  24. EXFORGE [Concomitant]
     Active Substance: AMLODIPINE BESYLATE\VALSARTAN
  25. FENOFIBRATE. [Concomitant]
     Active Substance: FENOFIBRATE
  26. ASPIRIN. [Concomitant]
     Active Substance: ASPIRIN
  27. NEXIUM [Suspect]
     Active Substance: ESOMEPRAZOLE MAGNESIUM
     Indication: GASTROOESOPHAGEAL REFLUX DISEASE
     Route: 048
     Dates: start: 20110220, end: 20160111
  28. VALSARTAN. [Concomitant]
     Active Substance: VALSARTAN
  29. AMLODIPINE BESILATE [Concomitant]
     Active Substance: AMLODIPINE BESYLATE
  30. VITAMIN D3 [Concomitant]
     Active Substance: CHOLECALCIFEROL
  31. LOTENSIN [Concomitant]
     Active Substance: BENAZEPRIL HYDROCHLORIDE

REACTIONS (5)
  - Chronic kidney disease-mineral and bone disorder [Unknown]
  - Renal failure [Unknown]
  - Acute kidney injury [Not Recovered/Not Resolved]
  - End stage renal disease [Unknown]
  - Chronic kidney disease [Not Recovered/Not Resolved]

NARRATIVE: CASE EVENT DATE: 20130602
